FAERS Safety Report 25422866 (Version 1)
Quarter: 2025Q2

REPORT INFORMATION
  Report Type: Spontaneous
  Country: US (occurrence: None)
  Receive Date: 20250610
  Receipt Date: 20250610
  Transmission Date: 20250716
  Serious: Yes (Hospitalization)
  Sender: FDA-CTU
  Company Number: None

PATIENT
  Age: 71 Year
  Sex: Male

DRUGS (2)
  1. DABIGATRAN ETEXILATE [Suspect]
     Active Substance: DABIGATRAN ETEXILATE
     Indication: Atrial fibrillation
  2. APIXABAN [Suspect]
     Active Substance: APIXABAN

REACTIONS (3)
  - Chronic obstructive pulmonary disease [None]
  - Pulmonary embolism [None]
  - Drug ineffective [None]

NARRATIVE: CASE EVENT DATE: 20250331
